FAERS Safety Report 6075626-2 (Version None)
Quarter: 2009Q1

REPORT INFORMATION
  Report Type: 
  Country: None (occurrence: None)
  Receive Date: 20090212
  Receipt Date: 20090206
  Transmission Date: 20090719
  Serious: Yes (Hospitalization, Other)
  Sender: FDA-Public Use
  Company Number: CO-PFIZER INC-2008075771

PATIENT

DRUGS (16)
  1. BLINDED *PLACEBO [Suspect]
     Indication: RHEUMATOID ARTHRITIS
     Dosage: UNK
     Route: 048
     Dates: start: 20080422, end: 20080828
  2. BLINDED CELECOXIB [Suspect]
     Indication: RHEUMATOID ARTHRITIS
     Dosage: UNK
     Route: 048
     Dates: start: 20080422, end: 20080828
  3. IBUPROFEN TABLETS [Suspect]
     Indication: RHEUMATOID ARTHRITIS
     Dosage: UNK
     Route: 048
     Dates: start: 20080422, end: 20080828
  4. NAPROXEN [Suspect]
     Indication: RHEUMATOID ARTHRITIS
     Dosage: UNK
     Route: 048
     Dates: start: 20080422, end: 20080828
  5. ESOMEPRAZOLE MAGNESIUM [Concomitant]
     Route: 048
     Dates: start: 20080824
  6. LEFLUNOMIDE [Concomitant]
     Route: 048
     Dates: start: 20050101
  7. BECLOMETASONE [Concomitant]
     Route: 055
     Dates: start: 20070101
  8. SALBUTAMOL [Concomitant]
     Route: 055
     Dates: start: 20070101
  9. IPRATROPIUM BROMIDE [Concomitant]
     Route: 055
     Dates: start: 20070101
  10. CLONIDINE HCL [Concomitant]
     Route: 048
     Dates: start: 20050101
  11. FUROSEMIDE [Concomitant]
     Route: 048
     Dates: start: 20050101
  12. LOSARTAN [Concomitant]
     Route: 048
     Dates: start: 20050101
  13. INSULATARD NPH HUMAN [Concomitant]
     Route: 030
     Dates: start: 20070101
  14. LOVASTATIN [Concomitant]
     Route: 048
     Dates: start: 20050101
  15. PREDNISOLONE [Concomitant]
     Route: 048
     Dates: start: 20080521
  16. SULFASALAZINE [Concomitant]
     Route: 048
     Dates: start: 20000101

REACTIONS (3)
  - ANAEMIA [None]
  - CHRONIC OBSTRUCTIVE PULMONARY DISEASE [None]
  - LOWER RESPIRATORY TRACT INFECTION [None]
